FAERS Safety Report 15372179 (Version 1)
Quarter: 2018Q3

REPORT INFORMATION
  Report Type: Spontaneous
  Country: US (occurrence: US)
  Receive Date: 20180905
  Receipt Date: 20180905
  Transmission Date: 20181010
  Serious: Yes (Hospitalization)
  Sender: FDA-Public Use
  Company Number: None

PATIENT
  Age: 33 Year
  Sex: Male

DRUGS (11)
  1. TPN ELECTROL INJ [Concomitant]
  2. BUPROPION. [Concomitant]
     Active Substance: BUPROPION
  3. OMEPRAZOLE. [Concomitant]
     Active Substance: OMEPRAZOLE
  4. DILAUDID [Concomitant]
     Active Substance: HYDROMORPHONE HYDROCHLORIDE
  5. METHADONE [Concomitant]
     Active Substance: METHADONE HYDROCHLORIDE
  6. METOCLOPRAM [Concomitant]
     Active Substance: METOCLOPRAMIDE
  7. SIMPONI [Suspect]
     Active Substance: GOLIMUMAB
     Indication: CROHN^S DISEASE
     Dosage: 100 MG EVERY 28 DAYS UNDER THE SKIN?          ?
     Route: 058
     Dates: start: 20160824
  8. HYDROMORPHONE [Concomitant]
     Active Substance: HYDROMORPHONE
  9. ABILIFY [Concomitant]
     Active Substance: ARIPIPRAZOLE
  10. LYRICA DIPHIENHYDRAM [Concomitant]
  11. PROCHLORPER [Concomitant]

REACTIONS (1)
  - Hospitalisation [None]

NARRATIVE: CASE EVENT DATE: 20180820
